FAERS Safety Report 4270761-3 (Version None)
Quarter: 2004Q1

REPORT INFORMATION
  Report Type: 
  Country: None (occurrence: None)
  Receive Date: 20040114
  Receipt Date: 20031205
  Transmission Date: 20041129
  Serious: Yes (Life-Threatening, Hospitalization)
  Sender: FDA-Public Use
  Company Number: JP-ROCHE-353443

PATIENT
  Age: 51 Year
  Sex: Male
  Weight: 51.5 kg

DRUGS (8)
  1. PANALDINE [Suspect]
     Route: 048
     Dates: start: 20030815, end: 20031031
  2. GLYBURIDE [Suspect]
     Route: 048
     Dates: start: 20030415, end: 20031030
  3. BASEN [Suspect]
     Route: 048
     Dates: start: 20030415, end: 20031030
  4. TERNELIN [Suspect]
     Route: 048
     Dates: start: 20030615, end: 20031030
  5. ADALAT [Concomitant]
     Route: 048
  6. TAKEPRON [Concomitant]
     Indication: GASTRIC ULCER
     Route: 048
  7. CARDENALIN [Concomitant]
     Indication: ATHEROSCLEROSIS OBLITERANS
     Route: 048
  8. CALTAN [Concomitant]
     Indication: HYPOCALCAEMIA
     Route: 048

REACTIONS (5)
  - ALANINE AMINOTRANSFERASE INCREASED [None]
  - ASPARTATE AMINOTRANSFERASE INCREASED [None]
  - HEPATIC FUNCTION ABNORMAL [None]
  - LYMPHOCYTE STIMULATION TEST POSITIVE [None]
  - PNEUMONIA [None]
